FAERS Safety Report 24974298 (Version 2)
Quarter: 2025Q1

REPORT INFORMATION
  Report Type: Spontaneous
  Country: US (occurrence: US)
  Receive Date: 20250217
  Receipt Date: 20250325
  Transmission Date: 20250409
  Serious: No
  Sender: BOEHRINGER INGELHEIM
  Company Number: US-Komodo Health-a23aa000005nkrdAAA

PATIENT
  Age: 65 Year
  Sex: Female

DRUGS (1)
  1. CYLTEZO [Suspect]
     Active Substance: ADALIMUMAB-ADBM
     Indication: Crohn^s disease

REACTIONS (2)
  - Injection site bruising [Unknown]
  - Product quality issue [Unknown]

NARRATIVE: CASE EVENT DATE: 20250207
